FAERS Safety Report 20736532 (Version 3)
Quarter: 2022Q2

REPORT INFORMATION
  Report Type: Report from Study
  Country: US (occurrence: US)
  Receive Date: 20220421
  Receipt Date: 20220509
  Transmission Date: 20220721
  Serious: Yes (Other)
  Sender: FDA-Public Use
  Company Number: US-TAKEDA-2021TUS075019

PATIENT
  Age: 56 Year
  Sex: Male
  Weight: 190.5 kg

DRUGS (5)
  1. BRIGATINIB [Suspect]
     Active Substance: BRIGATINIB
     Indication: Non-small cell lung cancer metastatic
     Dosage: 180 MILLIGRAM, QD
     Route: 048
     Dates: start: 20210916
  2. BRIGATINIB [Suspect]
     Active Substance: BRIGATINIB
     Dosage: 90 MILLIGRAM, QD
     Route: 048
     Dates: start: 20211021
  3. BRIGATINIB [Suspect]
     Active Substance: BRIGATINIB
     Dosage: 60 MILLIGRAM, QD
     Route: 048
     Dates: end: 20220418
  4. XGEVA [Concomitant]
     Active Substance: DENOSUMAB
     Indication: Bone density abnormal
     Dosage: 6 MILLIGRAM, Q4WEEKS
     Route: 058
     Dates: start: 202102
  5. PREDNISONE [Concomitant]
     Active Substance: PREDNISONE
     Indication: Arthritis
     Dosage: 5 MILLIGRAM, QD
     Route: 048
     Dates: start: 20220216

REACTIONS (9)
  - Metastases to central nervous system [Recovering/Resolving]
  - Hepatic enzyme abnormal [Recovered/Resolved]
  - Drug intolerance [Recovered/Resolved]
  - Chills [Recovered/Resolved]
  - Headache [Recovered/Resolved]
  - Stomatitis [Recovered/Resolved]
  - Muscle spasms [Recovered/Resolved]
  - Pyrexia [Recovered/Resolved]
  - Pain [Recovered/Resolved]

NARRATIVE: CASE EVENT DATE: 20210901
